FAERS Safety Report 16021352 (Version 1)
Quarter: 2019Q1

REPORT INFORMATION
  Report Type: Other
  Country: FI (occurrence: FI)
  Receive Date: 20190301
  Receipt Date: 20190301
  Transmission Date: 20190418
  Serious: Yes (Hospitalization, Other)
  Sender: FDA-Public Use
  Company Number: FI-APOTEX-2019AP008490

PATIENT
  Age: 68 Year
  Sex: Male

DRUGS (22)
  1. ATIVAN [Suspect]
     Active Substance: LORAZEPAM
     Dosage: 2 MG, UNK
     Route: 065
     Dates: start: 20180129
  2. RISPERIDON ORION [Suspect]
     Active Substance: RISPERIDONE
     Dosage: 4 MG, BID (1+0+3 MG)
     Route: 065
     Dates: start: 20180114
  3. OLANZAPINE. [Suspect]
     Active Substance: OLANZAPINE
     Dosage: 2 MG, TID
     Route: 065
     Dates: start: 20180201
  4. ATIVAN [Suspect]
     Active Substance: LORAZEPAM
     Dosage: 3 MG, QD (1MG+1MG+1MG)
     Route: 065
     Dates: start: 20180107
  5. OLANZAPIN ORION [Suspect]
     Active Substance: OLANZAPINE
     Indication: PRODUCT USED FOR UNKNOWN INDICATION
     Dosage: 7.5 MG, UNK
     Route: 065
     Dates: start: 20180131, end: 20180203
  6. ATIVAN [Suspect]
     Active Substance: LORAZEPAM
     Dosage: 4 MG, UNK
     Route: 065
     Dates: start: 20180126
  7. DIAPAM                             /00017001/ [Suspect]
     Active Substance: DIAZEPAM
     Dosage: 15 MG, QD
     Route: 065
  8. OLANZAPINE. [Suspect]
     Active Substance: OLANZAPINE
     Dosage: UNK
     Route: 065
     Dates: start: 20180203
  9. RISPERIDONE. [Suspect]
     Active Substance: RISPERIDONE
     Dosage: 3 MG, QD (0MG+0MG+3MG DAILY)
     Route: 065
     Dates: start: 20180115
  10. ATIVAN [Suspect]
     Active Substance: LORAZEPAM
     Indication: PRODUCT USED FOR UNKNOWN INDICATION
     Dosage: 2 MG, TID (0.5+0.5+1)
     Route: 065
     Dates: start: 20180104
  11. OLANZAPINE. [Suspect]
     Active Substance: OLANZAPINE
     Indication: HALLUCINATION, VISUAL
     Dosage: 10 MG, QD
     Route: 065
     Dates: start: 20180124
  12. RISPERIDON ORION [Suspect]
     Active Substance: RISPERIDONE
     Indication: PRODUCT USED FOR UNKNOWN INDICATION
     Dosage: 2 MG, UNK
     Route: 065
     Dates: start: 20180102
  13. RISPERIDON ORION [Suspect]
     Active Substance: RISPERIDONE
     Dosage: 2 MG, QD (0+0+2)
     Route: 065
     Dates: start: 20180124
  14. SERENASE                           /00027401/ [Suspect]
     Active Substance: HALOPERIDOL
     Dosage: 2.5 MG, QD (2 X SERENASE 2.5 MG)
     Route: 065
     Dates: start: 20180129
  15. DIAPAM                             /00017001/ [Suspect]
     Active Substance: DIAZEPAM
     Dosage: 10 MG, TID
     Route: 065
  16. RISPERIDONE. [Suspect]
     Active Substance: RISPERIDONE
     Indication: HALLUCINATION, VISUAL
     Dosage: 1 MG, QD (IN THE EVENING)
     Route: 065
     Dates: start: 20171231
  17. RISPERIDON ORION [Suspect]
     Active Substance: RISPERIDONE
     Dosage: 3 MG, BID, 1+0+2 MG
     Route: 065
     Dates: start: 20180107
  18. DIAPAM                             /00017001/ [Suspect]
     Active Substance: DIAZEPAM
     Indication: PRODUCT USED FOR UNKNOWN INDICATION
     Dosage: UNK UNK, (5MG+5MG+10MG)
     Route: 065
     Dates: start: 20180129, end: 20180201
  19. ZYPREXA [Suspect]
     Active Substance: OLANZAPINE
     Indication: PRODUCT USED FOR UNKNOWN INDICATION
     Dosage: 15 MG, UNK
     Route: 065
     Dates: start: 20180126
  20. RISPERIDONE. [Suspect]
     Active Substance: RISPERIDONE
     Dosage: 1 MG, QD (0MG+0MG+1MG DAILY)
     Route: 065
     Dates: start: 20180127, end: 20180129
  21. SERENASE                           /00027401/ [Suspect]
     Active Substance: HALOPERIDOL
     Indication: PRODUCT USED FOR UNKNOWN INDICATION
     Dosage: 5 MG, UNK
     Route: 065
     Dates: start: 20180126
  22. LORAZEPAM. [Suspect]
     Active Substance: LORAZEPAM
     Indication: PRODUCT USED FOR UNKNOWN INDICATION
     Dosage: UNK (0.5+0.5+1MG)
     Route: 065
     Dates: start: 20180201

REACTIONS (5)
  - Vascular dementia [Recovering/Resolving]
  - Hallucination [Recovering/Resolving]
  - Dementia with Lewy bodies [Recovering/Resolving]
  - Parkinson^s disease [Recovering/Resolving]
  - Balance disorder [Recovering/Resolving]
